FAERS Safety Report 4988909-1 (Version None)
Quarter: 2006Q2

REPORT INFORMATION
  Report Type: 
  Country: None (occurrence: None)
  Receive Date: 20060502
  Receipt Date: 20060421
  Transmission Date: 20061013
  Serious: Yes (Other)
  Sender: FDA-Public Use
  Company Number: US-JNJFOC-20060404968

PATIENT
  Sex: Female
  Weight: 57.15 kg

DRUGS (18)
  1. REMICADE [Suspect]
     Route: 042
  2. REMICADE [Suspect]
     Route: 042
  3. REMICADE [Suspect]
     Route: 042
  4. REMICADE [Suspect]
     Indication: RHEUMATOID ARTHRITIS
     Route: 042
  5. PREDNISONE TAB [Concomitant]
  6. METHOTREXATE [Concomitant]
     Route: 048
  7. FOLIC ACID [Concomitant]
  8. ACTONEL [Concomitant]
  9. M.V.I. [Concomitant]
  10. M.V.I. [Concomitant]
  11. M.V.I. [Concomitant]
  12. M.V.I. [Concomitant]
  13. M.V.I. [Concomitant]
  14. M.V.I. [Concomitant]
  15. M.V.I. [Concomitant]
  16. M.V.I. [Concomitant]
  17. CLARITIN [Concomitant]
  18. EXTRA STRENGTH TYLENOL [Concomitant]
     Indication: PREMEDICATION

REACTIONS (6)
  - CHEST DISCOMFORT [None]
  - CYANOSIS [None]
  - FLUSHING [None]
  - HYPOTENSION [None]
  - INFUSION RELATED REACTION [None]
  - NAUSEA [None]
